FAERS Safety Report 16491897 (Version 1)
Quarter: 2019Q2

REPORT INFORMATION
  Report Type: Spontaneous
  Country: US (occurrence: US)
  Receive Date: 20190518
  Receipt Date: 20190518
  Transmission Date: 20190711
  Serious: No
  Sender: FDA-Public Use
  Company Number: None

PATIENT
  Age: 46 Year
  Sex: Male
  Weight: 149.5 kg

DRUGS (4)
  1. DEXAMETHASONE. [Suspect]
     Active Substance: DEXAMETHASONE
     Dates: end: 20190514
  2. VINCRISTINE SULFATE. [Suspect]
     Active Substance: VINCRISTINE SULFATE
     Dates: end: 20190508
  3. CYTARABINE. [Suspect]
     Active Substance: CYTARABINE
     Dates: end: 20190507
  4. DAUNORUBICIN [Suspect]
     Active Substance: DAUNORUBICIN
     Dates: end: 20190508

REACTIONS (8)
  - Malaise [None]
  - Flushing [None]
  - Dyspnoea [None]
  - Oxygen saturation decreased [None]
  - Chills [None]
  - Dizziness [None]
  - Chest discomfort [None]
  - Blood pressure decreased [None]

NARRATIVE: CASE EVENT DATE: 20190515
